FAERS Safety Report 18783428 (Version 1)
Quarter: 2021Q1

REPORT INFORMATION
  Report Type: Spontaneous
  Country: CN (occurrence: CN)
  Receive Date: 20210125
  Receipt Date: 20210125
  Transmission Date: 20210419
  Serious: Yes (Hospitalization, Other)
  Sender: FDA-Public Use
  Company Number: CN-009507513-2101CHN010026

PATIENT
  Age: 61 Year
  Sex: Male
  Weight: 80 kg

DRUGS (3)
  1. KEYTRUDA [Suspect]
     Active Substance: PEMBROLIZUMAB
     Indication: HEPATIC CANCER METASTATIC
     Dosage: 200 MG, QD
     Route: 041
     Dates: start: 20201218, end: 20201218
  2. NEXAVAR [Suspect]
     Active Substance: SORAFENIB
     Indication: CHEMOTHERAPY
     Dosage: 400 MG, 2 TIMES 1 DAY
     Route: 048
     Dates: start: 20210107, end: 20210107
  3. SODIUM CHLORIDE. [Concomitant]
     Active Substance: SODIUM CHLORIDE
     Indication: MEDICATION DILUTION
     Dosage: 250 ML, QD
     Route: 041
     Dates: start: 20201218, end: 20201218

REACTIONS (4)
  - Product use in unapproved indication [Unknown]
  - Alanine aminotransferase increased [Unknown]
  - Aspartate aminotransferase increased [Unknown]
  - Blood bilirubin increased [Unknown]

NARRATIVE: CASE EVENT DATE: 20201218
